FAERS Safety Report 19746453 (Version 4)
Quarter: 2021Q4

REPORT INFORMATION
  Report Type: Spontaneous
  Country: US (occurrence: US)
  Receive Date: 20210825
  Receipt Date: 20211109
  Transmission Date: 20220303
  Serious: No
  Sender: FDA-Public Use
  Company Number: US-PFIZER INC-2019161729

PATIENT
  Age: 61 Year
  Sex: Female
  Weight: 83.91 kg

DRUGS (2)
  1. GENOTROPIN [Suspect]
     Active Substance: SOMATROPIN
     Indication: Growth hormone deficiency
     Dosage: 0.3 MG, ONCE A DAY
     Dates: start: 201903
  2. GENOTROPIN [Suspect]
     Active Substance: SOMATROPIN
     Dosage: UNSPECIFIED DOSE (REPORTED AS ^0.3^ NO UNIT PROVIDED), ONCE A DAY
     Dates: start: 20190420

REACTIONS (3)
  - Device use issue [Unknown]
  - Drug dose omission by device [Unknown]
  - Device leakage [Unknown]

NARRATIVE: CASE EVENT DATE: 20190405
